FAERS Safety Report 25543949 (Version 1)
Quarter: 2025Q3

REPORT INFORMATION
  Report Type: Spontaneous
  Country: US (occurrence: None)
  Receive Date: 20250711
  Receipt Date: 20250711
  Transmission Date: 20251020
  Serious: Yes (Hospitalization)
  Sender: FDA-CTU
  Company Number: None

PATIENT
  Age: 69 Year
  Sex: Male
  Weight: 78.9 kg

DRUGS (3)
  1. CARBOPLATIN [Suspect]
     Active Substance: CARBOPLATIN
  2. TAXOL [Suspect]
     Active Substance: PACLITAXEL
  3. PEMBROLIZUMAB [Suspect]
     Active Substance: PEMBROLIZUMAB

REACTIONS (12)
  - Dyspnoea [None]
  - Secretion discharge [None]
  - Device dislocation [None]
  - Breath sounds abnormal [None]
  - Oxygen saturation decreased [None]
  - Pneumonia aspiration [None]
  - Bacteraemia [None]
  - Sepsis [None]
  - Blood lactic acid increased [None]
  - Mass [None]
  - Procedural haemorrhage [None]
  - Tracheostomy [None]

NARRATIVE: CASE EVENT DATE: 20250607
